FAERS Safety Report 9547764 (Version 1)
Quarter: 2013Q3

REPORT INFORMATION
  Report Type: Spontaneous
  Country: CH (occurrence: None)
  Receive Date: 20130920
  Receipt Date: 20130920
  Transmission Date: 20140515
  Serious: Yes (Other)
  Sender: FDA-Public Use
  Company Number: 20130484

PATIENT
  Age: 36 Year
  Sex: Female
  Weight: 63 kg

DRUGS (2)
  1. FERINJECT [Suspect]
     Indication: IRON DEFICIENCY
     Dosage: 1000 MG IN 250 NORMAL SALINE INTRAVENOUS DRIP
     Route: 041
     Dates: start: 20130709, end: 20130709
  2. TARDYFERON (FERROUS SULFATE) [Concomitant]

REACTIONS (7)
  - Back pain [None]
  - Nausea [None]
  - Vomiting [None]
  - Neck pain [None]
  - Malaise [None]
  - Dysaesthesia [None]
  - Infusion related reaction [None]
